FAERS Safety Report 19101891 (Version 1)
Quarter: 2021Q2

REPORT INFORMATION
  Report Type: Spontaneous
  Country: US (occurrence: US)
  Receive Date: 20210407
  Receipt Date: 20210407
  Transmission Date: 20210717
  Serious: Yes (Hospitalization)
  Sender: FDA-Public Use
  Company Number: None

PATIENT
  Sex: Female

DRUGS (21)
  1. BLISOVI FE [Concomitant]
  2. VENTOLIN HFA [Concomitant]
     Active Substance: ALBUTEROL SULFATE
  3. MULTIVITAMIN/MINERAL [Concomitant]
  4. GILENYA [Suspect]
     Active Substance: FINGOLIMOD HYDROCHLORIDE
     Indication: MULTIPLE SCLEROSIS
     Route: 048
     Dates: start: 20190306
  5. ADVIL [Concomitant]
     Active Substance: IBUPROFEN
  6. DULOXETINE. [Concomitant]
     Active Substance: DULOXETINE
  7. FLUTICASONE SPR [Concomitant]
  8. MODAFINIL. [Concomitant]
     Active Substance: MODAFINIL
  9. TYLENOL [Concomitant]
     Active Substance: ACETAMINOPHEN
  10. UNITHROID [Concomitant]
     Active Substance: LEVOTHYROXINE SODIUM
  11. DICLOFENAC DR [Concomitant]
     Active Substance: DICLOFENAC SODIUM
  12. DICYCLOMINE [Concomitant]
     Active Substance: DICYCLOMINE HYDROCHLORIDE
  13. FIBERCON [Concomitant]
     Active Substance: CALCIUM POLYCARBOPHIL
  14. PROMETHAZINE [Concomitant]
     Active Substance: PROMETHAZINE HYDROCHLORIDE
  15. CYCLOBENZAPR [Concomitant]
     Active Substance: CYCLOBENZAPRINE
  16. GABAPENTIN. [Concomitant]
     Active Substance: GABAPENTIN
  17. TRAMADOL HCL [Concomitant]
     Active Substance: TRAMADOL HYDROCHLORIDE
  18. FLUOXETINE [Concomitant]
     Active Substance: FLUOXETINE HYDROCHLORIDE
  19. LEVOCETIRIZI [Concomitant]
  20. ONDANSETRON [Concomitant]
     Active Substance: ONDANSETRON
  21. VITAMIN D3 [Concomitant]
     Active Substance: CHOLECALCIFEROL

REACTIONS (2)
  - Vomiting [None]
  - COVID-19 pneumonia [None]
